FAERS Safety Report 4300459-4 (Version None)
Quarter: 2004Q1

REPORT INFORMATION
  Report Type: 
  Country: None (occurrence: None)
  Receive Date: 20040218
  Receipt Date: 20040204
  Transmission Date: 20041129
  Serious: Yes (Hospitalization, Other)
  Sender: FDA-Public Use
  Company Number: FR-SHR-03-011009

PATIENT
  Age: 39 Year
  Sex: Female
  Weight: 58 kg

DRUGS (3)
  1. BETAFERON( BETAFERON (SH  Y 579E) BETAFERON-BETA-1B) INJECTION [Suspect]
     Indication: MULTIPLE SCLEROSIS
     Dosage: 8 MIU/ML, EVERY 2D, SUBCUTANEOUS
     Route: 058
     Dates: start: 20030613, end: 20030629
  2. LEVOTHYROXINE SODIUM [Concomitant]
  3. PROZAC [Concomitant]

REACTIONS (26)
  - ABDOMINAL PAIN UPPER [None]
  - ALANINE AMINOTRANSFERASE INCREASED [None]
  - ANOREXIA [None]
  - ANXIETY [None]
  - ASTHENIA [None]
  - DEMYELINATION [None]
  - DEPRESSION SUICIDAL [None]
  - DIFFICULTY IN WALKING [None]
  - DISEASE PROGRESSION [None]
  - DIZZINESS [None]
  - DYSSTASIA [None]
  - FATIGUE [None]
  - HEADACHE [None]
  - HEMIPARESIS [None]
  - HYPOAESTHESIA [None]
  - INJECTION SITE PAIN [None]
  - LHERMITTE'S SIGN [None]
  - LOSS OF CONSCIOUSNESS [None]
  - MALAISE [None]
  - MULTIPLE SCLEROSIS RELAPSE [None]
  - PAIN IN EXTREMITY [None]
  - PALPITATIONS [None]
  - PARAESTHESIA [None]
  - PHOTOPHOBIA [None]
  - SCOTOMA [None]
  - VISION BLURRED [None]
